FAERS Safety Report 10008885 (Version 2)
Quarter: 2014Q2

REPORT INFORMATION
  Report Type: Report from Study
  Country: DE (occurrence: DE)
  Receive Date: 20140313
  Receipt Date: 20140414
  Transmission Date: 20141212
  Serious: Yes (Hospitalization)
  Sender: FDA-Public Use
  Company Number: US-ASTRAZENECA-2014SE16834

PATIENT
  Age: 0 Year
  Sex: Male
  Weight: 7.5 kg

DRUGS (6)
  1. PALIVIZUMAB [Suspect]
     Indication: PREMATURE BABY
     Route: 030
     Dates: start: 20131018, end: 20131018
  2. PALIVIZUMAB [Suspect]
     Indication: PREMATURE BABY
     Route: 030
     Dates: start: 20131115, end: 20131115
  3. PALIVIZUMAB [Suspect]
     Indication: PREMATURE BABY
     Route: 030
     Dates: start: 20131213, end: 20131213
  4. PALIVIZUMAB [Suspect]
     Indication: PREMATURE BABY
     Route: 030
     Dates: start: 20140110, end: 20140110
  5. PALIVIZUMAB [Suspect]
     Indication: PREMATURE BABY
     Route: 030
     Dates: start: 20140207, end: 20140207
  6. PALIVIZUMAB [Suspect]
     Indication: PREMATURE BABY
     Route: 030
     Dates: start: 20140307, end: 20140307

REACTIONS (2)
  - Febrile convulsion [Recovered/Resolved]
  - Viral infection [Recovered/Resolved]
